FAERS Safety Report 14527136 (Version 1)
Quarter: 2018Q1

REPORT INFORMATION
  Report Type: Spontaneous
  Country: US (occurrence: US)
  Receive Date: 20180212
  Receipt Date: 20180212
  Transmission Date: 20180509
  Serious: No
  Sender: FDA-Public Use
  Company Number: None

PATIENT
  Age: 3 Year
  Sex: Female
  Weight: 16.1 kg

DRUGS (1)
  1. SYMBICORT [Suspect]
     Active Substance: BUDESONIDE\FORMOTEROL FUMARATE DIHYDRATE
     Indication: ASTHMA
     Dosage: ?          OTHER ROUTE:INHALED?
     Route: 055
     Dates: start: 20180126, end: 20180212

REACTIONS (3)
  - Therapy change [None]
  - Psychomotor hyperactivity [None]
  - Aggression [None]

NARRATIVE: CASE EVENT DATE: 20180126
